FAERS Safety Report 19846709 (Version 1)
Quarter: 2021Q3

REPORT INFORMATION
  Report Type: Spontaneous
  Country: US (occurrence: US)
  Receive Date: 20210917
  Receipt Date: 20210917
  Transmission Date: 20211014
  Serious: Yes (Hospitalization, Other)
  Sender: FDA-Public Use
  Company Number: US-ACCORD-238242

PATIENT
  Age: 70 Year
  Sex: Female

DRUGS (2)
  1. CYTARABINE/CYTARABINE HYDROCHLORIDE/CYTARABINE OCFOSFATE [Suspect]
     Active Substance: CYTARABINE
     Indication: MARGINAL ZONE LYMPHOMA
     Route: 037
  2. METHOTREXATE. [Suspect]
     Active Substance: METHOTREXATE
     Indication: B-CELL LYMPHOMA
     Dosage: HIGH DOSE METHOTREXATE
     Route: 042

REACTIONS (7)
  - Nervous system disorder [Recovering/Resolving]
  - Cognitive disorder [Recovering/Resolving]
  - Meningitis chemical [Recovering/Resolving]
  - Neurotoxicity [Recovering/Resolving]
  - Lymphoproliferative disorder [Recovering/Resolving]
  - Pleocytosis [Recovering/Resolving]
  - Toxic encephalopathy [Recovering/Resolving]
